FAERS Safety Report 7572209-X (Version None)
Quarter: 2011Q2

REPORT INFORMATION
  Report Type: 
  Country: None (occurrence: None)
  Receive Date: 20110624
  Receipt Date: 20110613
  Transmission Date: 20111010
  Serious: Yes (Hospitalization, Other)
  Sender: FDA-Public Use
  Company Number: PHBS2007JP13324

PATIENT
  Age: 23 Year
  Sex: Male
  Weight: 64 kg

DRUGS (45)
  1. BONALON [Concomitant]
  2. PROGRAF [Suspect]
     Dosage: 3.5 MG DAILY
     Dates: start: 20070622, end: 20071004
  3. PROGRAF [Suspect]
     Dosage: 3.0 MG, UNK
     Dates: start: 20071019, end: 20080417
  4. OMEPRAZOLE [Concomitant]
  5. SULFAMETHOXAZOLE [Concomitant]
  6. DOGMATYL [Concomitant]
  7. ENALAPRIL MALEATE [Concomitant]
     Indication: HYPERTENSION
     Dosage: 10 MG
     Route: 048
     Dates: start: 20070514
  8. CERTICAN [Suspect]
     Dosage: 2 MG/DAY
     Route: 048
     Dates: start: 20070523, end: 20070528
  9. CERTICAN [Suspect]
     Dosage: 2 MG/D
     Route: 048
     Dates: start: 20070629, end: 20071017
  10. CERTICAN [Suspect]
     Dosage: 1.75 MG, UNK
     Dates: start: 20080822, end: 20081002
  11. CERTICAN [Suspect]
     Dosage: 1.25 MG, UNK
     Dates: start: 20100319
  12. PROGRAF [Suspect]
     Dosage: 4.0 MG DAILY
     Dates: start: 20070605, end: 20070621
  13. ENALAPRIL MALEATE [Concomitant]
  14. CERTICAN [Suspect]
     Dosage: 2.5 MG/DAY
     Route: 048
     Dates: start: 20070529, end: 20070604
  15. CERTICAN [Suspect]
     Dosage: 1.5 MG, UNK
     Dates: start: 20081003, end: 20091126
  16. PROGRAF [Suspect]
     Indication: HEART TRANSPLANT
     Dosage: 5.7 MG, DAILY
     Dates: start: 20070308, end: 20070529
  17. PROGRAF [Suspect]
     Dosage: 3.7 MG, UNK
     Dates: start: 20071005, end: 20071017
  18. PROGRAF [Suspect]
     Dosage: 3.2 MG, UNK
     Dates: start: 20071018, end: 20071018
  19. PROGRAF [Suspect]
     Dosage: 3.0 MG, UNK
     Dates: start: 20080424, end: 20080515
  20. PROGRAF [Suspect]
     Dosage: 3.0 MG, UNK
     Dates: start: 20080704
  21. CERTICAN [Suspect]
     Dosage: 1.75 MG/DAY
     Route: 048
     Dates: start: 20070517, end: 20070522
  22. CERTICAN [Suspect]
     Dosage: 1.75 MG, UNK
     Dates: start: 20071018, end: 20071018
  23. CERTICAN [Suspect]
     Dosage: 1.5 MG, UNK
     Dates: start: 20100114, end: 20100318
  24. PROGRAF [Suspect]
     Dosage: 5.5 MG DAILY
     Dates: start: 20070530, end: 20070604
  25. PROGRAF [Suspect]
     Dosage: 3.2 MG, UNK
     Dates: start: 20080418, end: 20080423
  26. PROGRAF [Suspect]
     Dosage: 3.2 MG, UNK
     Dates: start: 20080516, end: 20080701
  27. SLOW-K [Concomitant]
  28. POLARAMINE [Concomitant]
  29. ZADITEN [Concomitant]
  30. BISOPROLOL FUMARATE [Concomitant]
     Indication: HYPERTENSION
     Dosage: 5 MG
     Route: 048
     Dates: start: 20070514
  31. PRAVASTATIN SODIUM [Concomitant]
     Indication: HYPERLIPIDAEMIA
     Dosage: 20 MG
     Route: 048
     Dates: start: 20070514
  32. CERTICAN [Suspect]
     Indication: HEART TRANSPLANT
     Dosage: 1.5 MG/DAY
     Route: 048
     Dates: start: 20070514, end: 20070516
  33. CERTICAN [Suspect]
     Dosage: 1.5 MG/DAY
     Route: 048
     Dates: start: 20070612, end: 20070628
  34. CERTICAN [Suspect]
     Dosage: 1.75 MG, UNK
     Dates: start: 20091127, end: 20100113
  35. PROGRAF [Suspect]
     Dosage: 3.4 MG, UNK
     Dates: start: 20080702, end: 20080703
  36. NORVASC [Concomitant]
  37. PRAVASTATIN [Concomitant]
  38. CELLCEPT [Concomitant]
     Indication: HEART TRANSPLANT
     Dosage: 1750MG
     Route: 048
     Dates: start: 20060404, end: 20070513
  39. ANTIDIARRHOEAL MICROORGANISMS [Concomitant]
  40. CERTICAN [Suspect]
     Dosage: 2 MG/DAY
     Route: 048
     Dates: start: 20070605, end: 20070611
  41. CERTICAN [Suspect]
     Dosage: 1.5 MG, UNK
     Dates: start: 20071019, end: 20080821
  42. BUFFERIN [Concomitant]
  43. JUVELA [Concomitant]
  44. TRANILAST [Concomitant]
  45. MYCOPHENOLATE MEFETIL [Concomitant]

REACTIONS (16)
  - HEAD INJURY [None]
  - PYREXIA [None]
  - PAIN [None]
  - APHTHOUS STOMATITIS [None]
  - COUGH [None]
  - DIARRHOEA INFECTIOUS [None]
  - STOMATITIS [None]
  - UPPER RESPIRATORY TRACT INFLAMMATION [None]
  - CONCOMITANT DISEASE AGGRAVATED [None]
  - GASTROENTERITIS NOROVIRUS [None]
  - EATING DISORDER [None]
  - PHARYNGITIS [None]
  - SWELLING [None]
  - TOOTH INFECTION [None]
  - IMMUNOSUPPRESSANT DRUG LEVEL INCREASED [None]
  - VIRAL INFECTION [None]
